FAERS Safety Report 21764826 (Version 1)
Quarter: 2022Q4

REPORT INFORMATION
  Report Type: Spontaneous
  Country: CN (occurrence: CN)
  Receive Date: 20221222
  Receipt Date: 20221222
  Transmission Date: 20230113
  Serious: Yes (Other)
  Sender: FDA-Public Use
  Company Number: None

PATIENT
  Age: 63 Year
  Sex: Male
  Weight: 60 kg

DRUGS (1)
  1. LACOSAMIDE [Suspect]
     Active Substance: LACOSAMIDE
     Indication: Epilepsy
     Dosage: 100.000 MILLIGRAM, 2X/DAY (BID)
     Route: 048
     Dates: start: 20220420, end: 20221209

REACTIONS (3)
  - Haemorrhage subcutaneous [Unknown]
  - Breath odour [Unknown]
  - Contusion [Unknown]

NARRATIVE: CASE EVENT DATE: 20220801
